FAERS Safety Report 9026477 (Version 3)
Quarter: 2013Q1

REPORT INFORMATION
  Report Type: Spontaneous
  Country: JP (occurrence: None)
  Receive Date: 20130110
  Receipt Date: 20130110
  Transmission Date: 20140127
  Serious: Yes (Life-Threatening)
  Sender: FDA-Public Use
  Company Number: 0234891

PATIENT
  Age: 76 Year
  Sex: Female

DRUGS (4)
  1. TACHOSIL [Suspect]
     Indication: HAEMOSTASIS
     Dosage: 1/8 SHEET OF REGULAR SIZE
     Dates: start: 20121206, end: 20121206
  2. BOLHEAL [Concomitant]
  3. POLYGLYCOLIC ACID (POLYGLYCOLIC ACID) [Concomitant]
  4. DIOVANE (VALSARTAN) (TABLETS) [Concomitant]

REACTIONS (6)
  - Post procedural haemorrhage [None]
  - C-reactive protein increased [None]
  - Red blood cell count decreased [None]
  - Haemoglobin decreased [None]
  - Haematocrit decreased [None]
  - Platelet count decreased [None]
